FAERS Safety Report 4905985-2 (Version None)
Quarter: 2006Q1

REPORT INFORMATION
  Report Type: 
  Country: None (occurrence: None)
  Receive Date: 20060206
  Receipt Date: 20060125
  Transmission Date: 20060701
  Serious: Yes (Other)
  Sender: FDA-Public Use
  Company Number: 2006008594

PATIENT

DRUGS (1)
  1. VIRACEPT [Suspect]
     Indication: ASYMPTOMATIC HIV INFECTION
     Dosage: 2500 MG

REACTIONS (3)
  - CONGENITAL ANOMALY [None]
  - DRUG EXPOSURE DURING PREGNANCY [None]
  - POLYDACTYLY [None]
